FAERS Safety Report 4926910-4 (Version None)
Quarter: 2006Q1

REPORT INFORMATION
  Report Type: 
  Country: None (occurrence: None)
  Receive Date: 20060228
  Receipt Date: 20050908
  Transmission Date: 20060701
  Serious: No
  Sender: FDA-Public Use
  Company Number: US-GLAXOSMITHKLINE-A0573473A

PATIENT
  Age: 46 Year
  Sex: Female

DRUGS (7)
  1. LAMICTAL [Suspect]
     Indication: MIGRAINE
     Dosage: 100MG PER DAY
     Route: 048
  2. LOVASTATIN [Concomitant]
  3. ASPIRIN [Concomitant]
  4. MULTI-VITAMIN [Concomitant]
  5. OCUVITE [Concomitant]
  6. FISH OIL [Concomitant]
  7. COENZYME Q10 [Concomitant]
     Route: 065

REACTIONS (1)
  - HERPES SIMPLEX [None]
